FAERS Safety Report 7982057-4 (Version None)
Quarter: 2011Q4

REPORT INFORMATION
  Report Type: 
  Country: None (occurrence: None)
  Receive Date: 20111215
  Receipt Date: 20111207
  Transmission Date: 20120403
  Serious: Yes (Hospitalization)
  Sender: FDA-Public Use
  Company Number: TH-BAXTER-2011BH039008

PATIENT
  Age: 45 Year
  Sex: Male

DRUGS (3)
  1. DIANEAL [Suspect]
     Indication: PERITONEAL DIALYSIS
     Route: 033
     Dates: start: 20111129, end: 20110101
  2. DIANEAL [Suspect]
     Route: 033
     Dates: start: 20110101
  3. DIANEAL [Suspect]
     Route: 033
     Dates: start: 20110101, end: 20111129

REACTIONS (1)
  - TESTICULAR PAIN [None]
